FAERS Safety Report 10155201 (Version 1)
Quarter: 2014Q2

REPORT INFORMATION
  Report Type: Spontaneous
  Country: US (occurrence: None)
  Receive Date: 20140505
  Receipt Date: 20140505
  Transmission Date: 20141212
  Serious: No
  Sender: FDA-Public Use
  Company Number: None

PATIENT
  Age: 34 Year
  Sex: Female

DRUGS (1)
  1. LATISSE [Suspect]
     Dates: start: 20140430, end: 20140501

REACTIONS (2)
  - Ocular hyperaemia [None]
  - Eye discharge [None]
